FAERS Safety Report 13226564 (Version 1)
Quarter: 2017Q1

REPORT INFORMATION
  Report Type: Spontaneous
  Country: HR (occurrence: HR)
  Receive Date: 20170213
  Receipt Date: 20170213
  Transmission Date: 20170428
  Serious: Yes (Life-Threatening, Hospitalization, Other)
  Sender: FDA-Public Use
  Company Number: HR-JNJFOC-20170210885

PATIENT
  Age: 85 Year
  Sex: Male
  Weight: 90 kg

DRUGS (6)
  1. XARELTO [Suspect]
     Active Substance: RIVAROXABAN
     Indication: ATRIAL FIBRILLATION
     Route: 048
     Dates: start: 20160223, end: 20161210
  2. CARVELOL [Concomitant]
     Indication: ESSENTIAL HYPERTENSION
     Route: 048
     Dates: start: 201412
  3. TINIDIL [Concomitant]
     Indication: ESSENTIAL HYPERTENSION
     Route: 048
     Dates: start: 201612
  4. DUODART [Concomitant]
     Active Substance: DUTASTERIDE\TAMSULOSIN
     Indication: BENIGN PROSTATIC HYPERPLASIA
     Route: 048
     Dates: start: 201412
  5. ANDOL [Interacting]
     Active Substance: ASPIRIN
     Indication: PRODUCT USED FOR UNKNOWN INDICATION
     Route: 048
  6. SORTIS [Concomitant]
     Active Substance: ATORVASTATIN
     Route: 048
     Dates: start: 201412

REACTIONS (4)
  - Respiratory tract infection [Not Recovered/Not Resolved]
  - Drug interaction [Unknown]
  - Haemoptysis [Not Recovered/Not Resolved]
  - Pulmonary haemorrhage [Not Recovered/Not Resolved]

NARRATIVE: CASE EVENT DATE: 20161210
